FAERS Safety Report 15478513 (Version 1)
Quarter: 2018Q4

REPORT INFORMATION
  Report Type: Spontaneous
  Country: DE (occurrence: DE)
  Receive Date: 20181009
  Receipt Date: 20181009
  Transmission Date: 20190205
  Serious: Yes (Other)
  Sender: FDA-Public Use
  Company Number: DE-TAKEDA-2018TUS029144

PATIENT
  Age: 36 Year
  Sex: Female

DRUGS (1)
  1. ENTYVIO [Suspect]
     Active Substance: VEDOLIZUMAB
     Indication: COLITIS ULCERATIVE
     Dosage: UNK
     Route: 042
     Dates: start: 20180817, end: 20180828

REACTIONS (4)
  - Arthralgia [Recovered/Resolved]
  - Drug eruption [Recovered/Resolved]
  - Bone pain [Recovered/Resolved]
  - Haemorrhagic urticaria [Recovered/Resolved]

NARRATIVE: CASE EVENT DATE: 20180828
